FAERS Safety Report 25080884 (Version 1)
Quarter: 2025Q1

REPORT INFORMATION
  Report Type: Spontaneous
  Country: JP (occurrence: JP)
  Receive Date: 20250315
  Receipt Date: 20250315
  Transmission Date: 20250408
  Serious: Yes (Hospitalization, Other)
  Sender: ACCORD
  Company Number: JP-Accord-473243

PATIENT
  Age: 75 Year
  Sex: Female

DRUGS (6)
  1. PACLITAXEL [Interacting]
     Active Substance: PACLITAXEL
     Indication: Adenocarcinoma gastric
  2. RAMUCIRUMAB [Interacting]
     Active Substance: RAMUCIRUMAB
     Indication: Adenocarcinoma gastric
  3. RAMUCIRUMAB [Interacting]
     Active Substance: RAMUCIRUMAB
     Indication: Metastases to lung
  4. RAMUCIRUMAB [Interacting]
     Active Substance: RAMUCIRUMAB
     Indication: Metastases to lymph nodes
  5. PACLITAXEL [Interacting]
     Active Substance: PACLITAXEL
     Indication: Metastases to lung
  6. PACLITAXEL [Interacting]
     Active Substance: PACLITAXEL
     Indication: Metastases to lymph nodes

REACTIONS (2)
  - Chylothorax [Recovered/Resolved]
  - Drug interaction [Unknown]
